FAERS Safety Report 20996722 (Version 1)
Quarter: 2022Q2

REPORT INFORMATION
  Report Type: Report from Study
  Country: US (occurrence: US)
  Receive Date: 20220623
  Receipt Date: 20220623
  Transmission Date: 20220721
  Serious: Yes (Other)
  Sender: FDA-Public Use
  Company Number: US-BRISTOL-MYERS SQUIBB COMPANY-2022-056224

PATIENT
  Age: 74 Year
  Sex: Male
  Weight: 106.59 kg

DRUGS (1)
  1. POMALYST [Suspect]
     Active Substance: POMALIDOMIDE
     Indication: Plasma cell myeloma
     Dosage: DAILY FOR 1 WEEK ON, THEN 1 WEEK OFF OF EACH 28 DAYS CYCLE. REPEAT CYCLE.
     Route: 048
     Dates: start: 20211205

REACTIONS (1)
  - Nasal congestion [Unknown]
